FAERS Safety Report 23489118 (Version 1)
Quarter: 2024Q1

REPORT INFORMATION
  Report Type: Report from Study
  Country: AE (occurrence: AE)
  Receive Date: 20240206
  Receipt Date: 20240206
  Transmission Date: 20240410
  Serious: Yes (Death)
  Sender: FDA-Public Use
  Company Number: AE-Stemline Therapeutics, Inc.-2024ST000772

PATIENT
  Age: 48 Year
  Sex: Female

DRUGS (1)
  1. ORSERDU [Suspect]
     Active Substance: ELACESTRANT
     Indication: Breast cancer metastatic
     Route: 048
     Dates: start: 20231206, end: 20240130

REACTIONS (1)
  - Death [Fatal]

NARRATIVE: CASE EVENT DATE: 20240130
